FAERS Safety Report 5987113-8 (Version None)
Quarter: 2008Q4

REPORT INFORMATION
  Report Type: 
  Country: None (occurrence: None)
  Receive Date: 20081203
  Receipt Date: 20081125
  Transmission Date: 20090506
  Serious: Yes (Hospitalization)
  Sender: FDA-Public Use
  Company Number: 2008AL012014

PATIENT
  Age: 62 Year
  Sex: Female

DRUGS (3)
  1. DEXAMETHASONE [Suspect]
     Indication: MULTIPLE MYELOMA
     Dosage: 20 MG;QD;UNKNOWN
  2. BORTEZOMIB [Concomitant]
  3. THALIDOMIDE [Concomitant]

REACTIONS (3)
  - PYREXIA [None]
  - RENAL IMPAIRMENT [None]
  - TUMOUR LYSIS SYNDROME [None]
